FAERS Safety Report 19236371 (Version 5)
Quarter: 2022Q2

REPORT INFORMATION
  Report Type: Other
  Country: CA (occurrence: None)
  Receive Date: 20210510
  Receipt Date: 20220421
  Transmission Date: 20220721
  Serious: Yes (Other)
  Sender: FDA-Public Use
  Company Number: CA-ROCHE-2370837

PATIENT
  Age: 32 Year
  Sex: Female

DRUGS (8)
  1. OCREVUS [Suspect]
     Active Substance: OCRELIZUMAB
     Indication: Relapsing-remitting multiple sclerosis
     Dosage: THEN 600 MG EVERY 6 MONTHS?DAY 0, 14 THEN 600 MG Q6M
     Route: 042
     Dates: start: 20190722
  2. OCREVUS [Suspect]
     Active Substance: OCRELIZUMAB
     Route: 042
     Dates: start: 20200219
  3. GABAPENTIN [Concomitant]
     Active Substance: GABAPENTIN
     Dosage: ONGOING YES
  4. DULOXETINE [Concomitant]
     Active Substance: DULOXETINE
     Dosage: ONGOING YES
  5. DEXILANT [Concomitant]
     Active Substance: DEXLANSOPRAZOLE
     Dosage: ONGOING YES
  6. MICTORYL [Concomitant]
  7. CELECOXIB [Concomitant]
     Active Substance: CELECOXIB
     Indication: Back pain
     Dosage: YES
  8. ALEVE [Concomitant]
     Active Substance: NAPROXEN SODIUM
     Indication: Headache
     Dosage: YES

REACTIONS (11)
  - Pain [Unknown]
  - Infusion related reaction [Recovered/Resolved]
  - Blood potassium decreased [Unknown]
  - Pain [Unknown]
  - Nausea [Recovered/Resolved]
  - Vomiting [Recovered/Resolved]
  - Sinusitis [Recovered/Resolved]
  - Insomnia [Not Recovered/Not Resolved]
  - Motion sickness [Unknown]
  - Cough [Not Recovered/Not Resolved]
  - SARS-CoV-2 test positive [Recovered/Resolved]

NARRATIVE: CASE EVENT DATE: 20190801
